FAERS Safety Report 6013319-8 (Version None)
Quarter: 2008Q4

REPORT INFORMATION
  Report Type: 
  Country: None (occurrence: None)
  Receive Date: 20081219
  Receipt Date: 20081209
  Transmission Date: 20090506
  Serious: Yes (Hospitalization)
  Sender: FDA-Public Use
  Company Number: JP-AMGEN-US323553

PATIENT
  Age: 38 Year
  Sex: Male

DRUGS (4)
  1. ENBREL [Suspect]
     Indication: RHEUMATOID ARTHRITIS
     Dosage: PREVIOUSLY ON LYOPHILIZED UNSPECIFIED DOSE
     Route: 065
     Dates: start: 20080519
  2. VOLTAREN [Concomitant]
     Route: 048
  3. CYTOTEC [Concomitant]
     Route: 048
  4. PREDNISOLONE [Concomitant]
     Dosage: UNSPECIFIED
     Route: 048

REACTIONS (2)
  - CHEST PAIN [None]
  - PNEUMOTHORAX [None]
